FAERS Safety Report 24041875 (Version 1)
Quarter: 2024Q3

REPORT INFORMATION
  Report Type: Spontaneous
  Country: CN (occurrence: CN)
  Receive Date: 20240702
  Receipt Date: 20240702
  Transmission Date: 20241017
  Serious: Yes (Life-Threatening, Other)
  Sender: BAYER
  Company Number: CN-BAYER-2024A094735

PATIENT
  Age: 45 Year
  Sex: Male

DRUGS (1)
  1. ULTRAVIST [Suspect]
     Active Substance: IOPROMIDE
     Indication: Imaging procedure
     Dosage: 95 ML, ONCE
     Route: 042
     Dates: start: 20240614, end: 20240614

REACTIONS (16)
  - Anaphylactic shock [Recovering/Resolving]
  - Blood pressure decreased [None]
  - Respiratory rate increased [Recovering/Resolving]
  - Depressed level of consciousness [Recovered/Resolved]
  - Hypoaesthesia [None]
  - Chest discomfort [None]
  - Erythema [None]
  - Blood pressure immeasurable [Recovered/Resolved]
  - Oxygen saturation decreased [Recovered/Resolved]
  - Hyperhidrosis [None]
  - Lip swelling [None]
  - Vomiting [None]
  - Urinary incontinence [None]
  - Dyspnoea [None]
  - Restlessness [None]
  - Heart rate increased [Recovering/Resolving]

NARRATIVE: CASE EVENT DATE: 20240614
